FAERS Safety Report 21960802 (Version 1)
Quarter: 2023Q1

REPORT INFORMATION
  Report Type: Spontaneous
  Country: TR (occurrence: TR)
  Receive Date: 20230207
  Receipt Date: 20230207
  Transmission Date: 20230418
  Serious: Yes (Other)
  Sender: FDA-Public Use
  Company Number: TR-002147023-NVSC2022TR277352

PATIENT
  Age: 53 Year
  Sex: Female
  Weight: 100 kg

DRUGS (4)
  1. ELTROMBOPAG OLAMINE [Suspect]
     Active Substance: ELTROMBOPAG OLAMINE
     Indication: Aplastic anaemia
     Dosage: 150 MG (100- 50 MG)
     Route: 048
     Dates: start: 20170414, end: 20220727
  2. ELTROMBOPAG OLAMINE [Suspect]
     Active Substance: ELTROMBOPAG OLAMINE
     Indication: Thrombocytopenia
  3. TRANEXAMIC ACID [Concomitant]
     Active Substance: TRANEXAMIC ACID
     Indication: Thrombocytopenia
     Dosage: 3000 MG
     Route: 048
     Dates: start: 20170414, end: 20220727
  4. PREDNOL [Concomitant]
     Indication: Thrombocytopenia
     Dosage: 16-32 MG
     Route: 048
     Dates: start: 20170414, end: 20220727

REACTIONS (5)
  - Bone marrow failure [Unknown]
  - Platelet count decreased [Unknown]
  - Dysplasia [Unknown]
  - Chromosomal mutation [Recovered/Resolved]
  - Fibrosis [Unknown]

NARRATIVE: CASE EVENT DATE: 20210802
